FAERS Safety Report 5074316-2 (Version None)
Quarter: 2006Q3

REPORT INFORMATION
  Report Type: 
  Country: None (occurrence: None)
  Receive Date: 20060808
  Receipt Date: 20050616
  Transmission Date: 20061208
  Serious: No
  Sender: FDA-Public Use
  Company Number: US-AMGEN-KDL139294

PATIENT
  Sex: Male
  Weight: 97.6 kg

DRUGS (21)
  1. PROCRIT [Suspect]
     Indication: RENAL FAILURE CHRONIC
     Dates: start: 20050401
  2. IRON [Concomitant]
  3. ASCORBIC ACID [Concomitant]
  4. FEOSOL [Concomitant]
  5. TERAZOSIN HCL [Concomitant]
  6. RANITIDINE [Concomitant]
  7. MINOXIDIL [Concomitant]
  8. DIGOXIN [Concomitant]
  9. SPIRONOLACTONE [Concomitant]
  10. FUROSEMIDE [Concomitant]
  11. NOVOLIN N [Concomitant]
  12. GEMFIBROZIL [Concomitant]
  13. SIMVASTATIN [Concomitant]
  14. BACLOFEN [Concomitant]
  15. GLYBURIDE [Concomitant]
  16. SINGULAIR [Concomitant]
  17. ISOSORBIDE DINITRATE [Concomitant]
  18. SOTALOL HCL [Concomitant]
  19. CALCIUM GLUCONATE [Concomitant]
  20. UNSPECIFIED MEDICATION [Concomitant]
  21. ASPIRIN [Concomitant]

REACTIONS (5)
  - ABDOMINAL PAIN UPPER [None]
  - ANOREXIA [None]
  - DIARRHOEA [None]
  - NAUSEA [None]
  - WEIGHT DECREASED [None]
